FAERS Safety Report 17347953 (Version 1)
Quarter: 2020Q1

REPORT INFORMATION
  Report Type: Spontaneous
  Country: US (occurrence: US)
  Receive Date: 20200128
  Receipt Date: 20200128
  Transmission Date: 20200409
  Serious: Yes (Life-Threatening, Hospitalization)
  Sender: FDA-Public Use
  Company Number: None

PATIENT
  Age: 15 Year
  Sex: Male
  Weight: 84.5 kg

DRUGS (1)
  1. RHINO 8 [Suspect]
     Active Substance: DIETARY SUPPLEMENT
     Indication: PRODUCT USED FOR UNKNOWN INDICATION
     Route: 048
     Dates: start: 20200127, end: 20200127

REACTIONS (11)
  - Aspartate aminotransferase increased [None]
  - Restlessness [None]
  - Tachycardia [None]
  - Hypertension [None]
  - Troponin increased [None]
  - Electrocardiogram QT prolonged [None]
  - Nausea [None]
  - Vomiting [None]
  - Chest pain [None]
  - Tremor [None]
  - Asthenia [None]

NARRATIVE: CASE EVENT DATE: 20200127
